FAERS Safety Report 20878910 (Version 1)
Quarter: 2022Q2

REPORT INFORMATION
  Report Type: Spontaneous
  Country: US (occurrence: None)
  Receive Date: 20220526
  Receipt Date: 20220526
  Transmission Date: 20220721
  Serious: No
  Sender: FDA-Public Use
  Company Number: None

PATIENT
  Age: 60 Year
  Sex: Male

DRUGS (1)
  1. HUMIRA [Suspect]
     Active Substance: ADALIMUMAB
     Indication: Hidradenitis
     Dosage: INJECT 40 MG SUBCUTANEOUSLY ONCE A  WEEK  STARTING ON DAY 29  AS DIRECTED.     ?
     Route: 058
     Dates: start: 202204

REACTIONS (1)
  - Skin infection [None]
